FAERS Safety Report 9976222 (Version 1)
Quarter: 2014Q1

REPORT INFORMATION
  Report Type: Report from Study
  Country: US (occurrence: US)
  Receive Date: 20140306
  Receipt Date: 20140306
  Transmission Date: 20141002
  Serious: No
  Sender: FDA-Public Use
  Company Number: US-ABBVIE-13P-163-1165543-00

PATIENT
  Age: 36 Year
  Sex: Male

DRUGS (8)
  1. HUMIRA [Suspect]
     Indication: PSORIATIC ARTHROPATHY
     Dates: start: 20130614
  2. METHOTREXATE [Concomitant]
     Indication: PSORIATIC ARTHROPATHY
  3. FOLIC ACID [Concomitant]
     Indication: VITAMIN SUPPLEMENTATION
     Dosage: 1 MG DAILY
  4. ALLEGRA [Concomitant]
     Indication: HYPERSENSITIVITY
     Dosage: 180 MG DAILY
  5. ALLEGRA [Concomitant]
     Indication: GASTROINTESTINAL DISORDER
  6. PSEUDOEPHEDRINE [Concomitant]
     Indication: HYPERSENSITIVITY
     Dosage: 120 MG DAILY
  7. HYOSCYAMINE [Concomitant]
     Indication: ABDOMINAL PAIN
     Dosage: 0.125 MG SUBLINGUAL EVERY 4 HOURS AS NEEDED
  8. ZOFRAN [Concomitant]
     Indication: NAUSEA
     Dosage: 4 MG 1-2 TABLETS THREE TIMES DAILY

REACTIONS (5)
  - Drug effect incomplete [Not Recovered/Not Resolved]
  - Psoriatic arthropathy [Not Recovered/Not Resolved]
  - Back pain [Not Recovered/Not Resolved]
  - Arthralgia [Not Recovered/Not Resolved]
  - Arthropathy [Not Recovered/Not Resolved]
